FAERS Safety Report 23189079 (Version 1)
Quarter: 2023Q4

REPORT INFORMATION
  Report Type: Spontaneous
  Country: US (occurrence: US)
  Receive Date: 20231115
  Receipt Date: 20231115
  Transmission Date: 20240109
  Serious: No
  Sender: FDA-Public Use
  Company Number: US-BRISTOL-MYERS SQUIBB COMPANY-2023-164280

PATIENT
  Age: 66 Year
  Sex: Male
  Weight: 116.1 kg

DRUGS (1)
  1. REVLIMID [Suspect]
     Active Substance: LENALIDOMIDE
     Indication: Plasma cell myeloma
     Dosage: FREQUENCY: 1 CAP 21 DAYS ON 7 DAYS OFF 28 DAYS CYCLE
     Route: 048
     Dates: start: 202204

REACTIONS (1)
  - Rash [Not Recovered/Not Resolved]
